FAERS Safety Report 9069661 (Version 11)
Quarter: 2013Q4

REPORT INFORMATION
  Report Type: Spontaneous
  Country: JP (occurrence: JP)
  Receive Date: 20130215
  Receipt Date: 20131226
  Transmission Date: 20140711
  Serious: Yes (Hospitalization, Disabling, Other)
  Sender: FDA-Public Use
  Company Number: JP-B.I. PHARMACEUTICALS,INC./RIDGEFIELD-2013-BI-04030NB

PATIENT
  Age: 0 Day
  Sex: Male
  Weight: 1.4 kg

DRUGS (4)
  1. MICOMBI COMBINATION [Suspect]
     Indication: HYPERTENSION
     Dosage: 1 ANZ
     Route: 064
     Dates: start: 20130104, end: 20130206
  2. AMLODIPINE [Concomitant]
     Indication: HYPERTENSION
     Dosage: 5 MG
     Route: 015
  3. MUCODYNE [Concomitant]
     Dosage: 150 MG
     Route: 015
  4. BAKUMONDOTO [Concomitant]
     Dosage: 9 G
     Route: 015

REACTIONS (5)
  - Hypotension [Not Recovered/Not Resolved]
  - Oliguria [Not Recovered/Not Resolved]
  - Renal impairment [Not Recovered/Not Resolved]
  - Foetal growth restriction [Unknown]
  - Renal tubular acidosis [Unknown]
